FAERS Safety Report 10606715 (Version 1)
Quarter: 2014Q4

REPORT INFORMATION
  Report Type: Spontaneous
  Country: US (occurrence: None)
  Receive Date: 20141124
  Receipt Date: 20141124
  Transmission Date: 20150529
  Serious: Yes (Hospitalization)
  Sender: FDA-Public Use
  Company Number: None

PATIENT
  Age: 74 Year
  Sex: Female
  Weight: 85 kg

DRUGS (6)
  1. PROPOFOL. [Suspect]
     Active Substance: PROPOFOL
     Indication: DENTAL OPERATION
     Dosage: RECENT
  2. ALBUTEROL. [Concomitant]
     Active Substance: ALBUTEROL
  3. SYSTANE (HYPROMELLOSE 2910 (4000 MPA.S)) [Concomitant]
     Active Substance: HYPROMELLOSE 2910 (4000 MPA.S)
  4. CATAPRES [Concomitant]
     Active Substance: CLONIDINE HYDROCHLORIDE
  5. FLECTOR [Concomitant]
     Active Substance: DICLOFENAC EPOLAMINE
  6. DURAGESIC [Concomitant]
     Active Substance: FENTANYL

REACTIONS (2)
  - Dyskinesia [None]
  - Mental status changes [None]

NARRATIVE: CASE EVENT DATE: 20140804
